FAERS Safety Report 5977804-7 (Version None)
Quarter: 2008Q4

REPORT INFORMATION
  Report Type: 
  Country: None (occurrence: None)
  Receive Date: 20081201
  Receipt Date: 20081201
  Transmission Date: 20090506
  Serious: No
  Sender: FDA-Public Use
  Company Number: None

PATIENT
  Age: 79 Year
  Sex: Male
  Weight: 63.5036 kg

DRUGS (1)
  1. MORPHINE [Suspect]
     Indication: PAIN
     Dosage: 15 MG 4 X PER DAY PO
     Route: 048
     Dates: start: 20080301, end: 20080901

REACTIONS (7)
  - AMNESIA [None]
  - ANOREXIA [None]
  - DEPRESSION [None]
  - PRODUCT QUALITY ISSUE [None]
  - SOMNOLENCE [None]
  - WEIGHT DECREASED [None]
  - WITHDRAWAL SYNDROME [None]
